FAERS Safety Report 7951709-4 (Version None)
Quarter: 2011Q4

REPORT INFORMATION
  Report Type: 
  Country: None (occurrence: None)
  Receive Date: 20111201
  Receipt Date: 20111125
  Transmission Date: 20120403
  Serious: Yes (Other)
  Sender: FDA-Public Use
  Company Number: JP-JNJFOC-20111111042

PATIENT
  Age: 71 Year
  Sex: Male

DRUGS (3)
  1. LEVOFLOXACIN [Suspect]
     Indication: INFECTION
     Route: 065
  2. MINOCYCLINE HCL [Concomitant]
     Route: 065
  3. MOBENZOCIN [Concomitant]
     Route: 065

REACTIONS (2)
  - DYSKINESIA [None]
  - PSYCHIATRIC SYMPTOM [None]
